FAERS Safety Report 26088970 (Version 4)
Quarter: 2025Q4

REPORT INFORMATION
  Report Type: Spontaneous
  Country: US (occurrence: US)
  Receive Date: 20251125
  Receipt Date: 20251219
  Transmission Date: 20260117
  Serious: Yes (Hospitalization, Other)
  Sender: SANOFI AVENTIS
  Company Number: US-SA-2025SA340262

PATIENT
  Age: 40 Year
  Sex: Male

DRUGS (3)
  1. QFITLIA [Suspect]
     Active Substance: FITUSIRAN
     Indication: Factor VIII deficiency
     Dosage: 50 (UNITS NOT PROVIDED), Q2M
     Route: 058
  2. QFITLIA [Suspect]
     Active Substance: FITUSIRAN
     Indication: Factor IX deficiency
  3. ALTUVIIIO [Suspect]
     Active Substance: EFANESOCTOCOG ALFA
     Indication: Pain
     Dosage: 1000 IU
     Dates: start: 202512

REACTIONS (7)
  - Lymphadenopathy [Unknown]
  - Lymphoma [Unknown]
  - Fatigue [Unknown]
  - Pain [Unknown]
  - Arthralgia [Unknown]
  - Gait disturbance [Unknown]
  - Traumatic haemorrhage [Unknown]

NARRATIVE: CASE EVENT DATE: 20251101
